FAERS Safety Report 14151630 (Version 6)
Quarter: 2020Q2

REPORT INFORMATION
  Report Type: Spontaneous
  Country: TW (occurrence: TW)
  Receive Date: 20171102
  Receipt Date: 20200612
  Transmission Date: 20200713
  Serious: Yes (Death, Hospitalization, Other)
  Sender: FDA-Public Use
  Company Number: TW-BRISTOL-MYERS SQUIBB COMPANY-BMS-2017-097655

PATIENT
  Age: 68 Year
  Sex: Male
  Weight: 66 kg

DRUGS (1)
  1. OPDIVO [Suspect]
     Active Substance: NIVOLUMAB
     Indication: HEPATOCELLULAR CARCINOMA
     Dosage: 1 MG/KG, Q4WK
     Route: 042
     Dates: start: 20170403, end: 20170920

REACTIONS (8)
  - Portal vein thrombosis [Unknown]
  - Cholelithiasis [Unknown]
  - Intentional product use issue [Unknown]
  - Off label use [Unknown]
  - Hepatitis [Unknown]
  - Hepatic failure [Fatal]
  - Prescribed underdose [Unknown]
  - Pyrexia [Unknown]

NARRATIVE: CASE EVENT DATE: 20171019
